FAERS Safety Report 11973361 (Version 3)
Quarter: 2016Q3

REPORT INFORMATION
  Report Type: Spontaneous
  Country: US (occurrence: US)
  Receive Date: 20160128
  Receipt Date: 20160810
  Transmission Date: 20161109
  Serious: Yes (Other)
  Sender: FDA-Public Use
  Company Number: US-ASTELLAS-2016US001805

PATIENT
  Age: 82 Year
  Sex: Male

DRUGS (2)
  1. XTANDI [Suspect]
     Active Substance: ENZALUTAMIDE
     Indication: PROSTATE CANCER METASTATIC
     Route: 048
     Dates: start: 201602
  2. XTANDI [Suspect]
     Active Substance: ENZALUTAMIDE
     Route: 048

REACTIONS (6)
  - Yellow skin [Unknown]
  - Prostatic specific antigen increased [Unknown]
  - Underdose [Unknown]
  - Diarrhoea [Unknown]
  - Penile haemorrhage [Unknown]
  - Urethral injury [Unknown]

NARRATIVE: CASE EVENT DATE: 201602
